FAERS Safety Report 17244672 (Version 2)
Quarter: 2020Q1

REPORT INFORMATION
  Report Type: Report from Study
  Country: None (occurrence: US)
  Receive Date: 20200107
  Receipt Date: 20200216
  Transmission Date: 20200409
  Serious: Yes (Other)
  Sender: FDA-Public Use
  Company Number: US-ABBVIE-20K-163-3222293-00

PATIENT
  Age: 65 Year
  Sex: Male
  Weight: 102.15 kg

DRUGS (2)
  1. HUMIRA [Suspect]
     Active Substance: ADALIMUMAB
     Indication: PSORIATIC ARTHROPATHY
     Route: 058
     Dates: start: 2015
  2. HUMIRA [Suspect]
     Active Substance: ADALIMUMAB
     Indication: PSORIASIS
     Route: 058

REACTIONS (8)
  - Scar [Recovering/Resolving]
  - Post procedural complication [Unknown]
  - Hypoaesthesia [Recovering/Resolving]
  - Nasopharyngitis [Recovered/Resolved]
  - Spinal cord compression [Recovering/Resolving]
  - Central cord syndrome [Unknown]
  - Spinal fusion surgery [Unknown]
  - Muscular weakness [Recovering/Resolving]

NARRATIVE: CASE EVENT DATE: 201805
